FAERS Safety Report 9789690 (Version 2)
Quarter: 2014Q1

REPORT INFORMATION
  Report Type: Spontaneous
  Country: BR (occurrence: None)
  Receive Date: 20131227
  Receipt Date: 20140123
  Transmission Date: 20141002
  Serious: Yes (Other)
  Sender: FDA-Public Use
  Company Number: 7258886

PATIENT
  Sex: Female

DRUGS (1)
  1. LEVOTHYROXINE SODIUM [Suspect]
     Indication: THYROIDECTOMY
     Dosage: STOPPED
     Dates: start: 2013

REACTIONS (3)
  - Blood thyroid stimulating hormone increased [None]
  - Fibromyalgia [None]
  - No therapeutic response [None]
